FAERS Safety Report 4351714-3 (Version None)
Quarter: 2004Q2

REPORT INFORMATION
  Report Type: 
  Country: None (occurrence: None)
  Receive Date: 20040427
  Receipt Date: 20040414
  Transmission Date: 20050107
  Serious: Yes (Hospitalization)
  Sender: FDA-Public Use
  Company Number: 2004021921

PATIENT
  Age: 80 Year
  Sex: Female

DRUGS (7)
  1. NEURONTIN [Suspect]
     Indication: FACIAL PAIN
     Dosage: 300 MG (DAILY), ORAL
     Route: 048
     Dates: start: 20040315, end: 20040101
  2. FENTANYL [Suspect]
     Indication: FACIAL PAIN
     Dosage: 25 MCG/H (DAILY), TRANSDERMAL
     Route: 062
     Dates: start: 20040315, end: 20040101
  3. APOREX (DEXTROPROPOXYPHENE HYDROCHLORIDE, PRACETAMOL) [Concomitant]
  4. LISINOPRIL [Concomitant]
  5. ATENOLOL [Concomitant]
  6. OMEPRAZOLE [Concomitant]
  7. TEMAZEPAM [Concomitant]

REACTIONS (4)
  - BALANCE DISORDER [None]
  - BLOOD SODIUM DECREASED [None]
  - DIZZINESS [None]
  - FALL [None]
